FAERS Safety Report 8485598-9 (Version None)
Quarter: 2012Q3

REPORT INFORMATION
  Report Type: 
  Country: None (occurrence: None)
  Receive Date: 20120703
  Receipt Date: 20120621
  Transmission Date: 20120928
  Serious: Yes (Hospitalization)
  Sender: FDA-Public Use
  Company Number: FR-ELI_LILLY_AND_COMPANY-FR201206006805

PATIENT
  Age: 87 Year
  Sex: Male

DRUGS (2)
  1. FORTEO [Suspect]
     Dosage: 20 UG, QD
     Dates: start: 20120616
  2. FORTEO [Suspect]
     Indication: OSTEOPOROSIS
     Dosage: 20 UG, QD
     Dates: start: 20120210, end: 20120614

REACTIONS (2)
  - URINARY BLADDER POLYP [None]
  - FATIGUE [None]
